FAERS Safety Report 20088804 (Version 2)
Quarter: 2022Q3

REPORT INFORMATION
  Report Type: Spontaneous
  Country: US (occurrence: US)
  Receive Date: 20211119
  Receipt Date: 20220912
  Transmission Date: 20221027
  Serious: No
  Sender: FDA-Public Use
  Company Number: US-LUPIN PHARMACEUTICALS INC.-2021-22354

PATIENT
  Sex: Male

DRUGS (1)
  1. ALBUTEROL SULFATE [Suspect]
     Active Substance: ALBUTEROL SULFATE
     Indication: Lung disorder
     Dosage: UNK (2 PUFF AS NEEDED)
     Dates: start: 20211103

REACTIONS (5)
  - Device delivery system issue [Unknown]
  - Device malfunction [Unknown]
  - Product lot number issue [Unknown]
  - Product use in unapproved indication [Unknown]
  - No adverse event [Unknown]
